FAERS Safety Report 9680305 (Version 3)
Quarter: 2013Q4

REPORT INFORMATION
  Report Type: Spontaneous
  Country: IN (occurrence: IN)
  Receive Date: 20131111
  Receipt Date: 20131122
  Transmission Date: 20140711
  Serious: No
  Sender: FDA-Public Use
  Company Number: IN-009507513-1311IND001275

PATIENT
  Age: 43 Year
  Sex: Male

DRUGS (1)
  1. JANUMET [Suspect]
     Dosage: FREQUENCY: 2/DAY
     Route: 048
     Dates: end: 2013

REACTIONS (1)
  - Dyspepsia [Recovered/Resolved]
